FAERS Safety Report 20382651 (Version 1)
Quarter: 2022Q1

REPORT INFORMATION
  Report Type: Spontaneous
  Country: US (occurrence: None)
  Receive Date: 20220126
  Receipt Date: 20220126
  Transmission Date: 20220423
  Serious: Yes (Other)
  Sender: FDA-Public Use
  Company Number: None

PATIENT
  Age: 39 Year
  Sex: Female
  Weight: 63 kg

DRUGS (1)
  1. SERTRALINE [Suspect]
     Active Substance: SERTRALINE HYDROCHLORIDE
     Indication: Acute stress disorder
     Dosage: OTHER QUANTITY : 1 TABLET(S);?FREQUENCY : AT BEDTIME;?
     Route: 048
     Dates: start: 20220105, end: 20220119

REACTIONS (7)
  - Muscle twitching [None]
  - Eye movement disorder [None]
  - Tic [None]
  - Muscle twitching [None]
  - Treatment noncompliance [None]
  - Therapy interrupted [None]
  - Stress [None]

NARRATIVE: CASE EVENT DATE: 20220119
